FAERS Safety Report 22156514 (Version 1)
Quarter: 2023Q1

REPORT INFORMATION
  Report Type: Spontaneous
  Country: US (occurrence: US)
  Receive Date: 20230330
  Receipt Date: 20230330
  Transmission Date: 20230418
  Serious: No
  Sender: FDA-Public Use
  Company Number: US-TAKEDA-2023TUS031666

PATIENT

DRUGS (1)
  1. DEXILANT [Suspect]
     Active Substance: DEXLANSOPRAZOLE
     Indication: Gastric disorder
     Dosage: UNK
     Route: 065
     Dates: start: 2017

REACTIONS (2)
  - Off label use [Unknown]
  - No adverse event [Unknown]
